FAERS Safety Report 12706115 (Version 2)
Quarter: 2016Q3

REPORT INFORMATION
  Report Type: Spontaneous
  Country: US (occurrence: US)
  Receive Date: 20160901
  Receipt Date: 20160901
  Transmission Date: 20161109
  Serious: No
  Sender: FDA-Public Use
  Company Number: US-JAZZ-2016-US-008007

PATIENT
  Sex: Male

DRUGS (49)
  1. XYREM [Suspect]
     Active Substance: SODIUM OXYBATE
     Dosage: DOSE ADJUSTMENTS
     Route: 048
  2. VITAMIN B12 [Concomitant]
     Active Substance: CYANOCOBALAMIN
  3. BRINTELLIX [Concomitant]
     Active Substance: VORTIOXETINE HYDROBROMIDE
  4. COENZYME Q10 [Concomitant]
     Active Substance: UBIDECARENONE
  5. LEXAPRO [Concomitant]
     Active Substance: ESCITALOPRAM OXALATE
  6. TOPAMAX [Concomitant]
     Active Substance: TOPIRAMATE
  7. CYMBALTA [Concomitant]
     Active Substance: DULOXETINE HYDROCHLORIDE
  8. LEVOTHYROXINE. [Concomitant]
     Active Substance: LEVOTHYROXINE
  9. CONZIP [Concomitant]
     Active Substance: TRAMADOL HYDROCHLORIDE
  10. PROPRANOLOL [Concomitant]
     Active Substance: PROPRANOLOL\PROPRANOLOL HYDROCHLORIDE
  11. CRESTOR [Concomitant]
     Active Substance: ROSUVASTATIN CALCIUM
  12. ADDERALL XR [Concomitant]
     Active Substance: AMPHETAMINE ASPARTATE\AMPHETAMINE SULFATE\DEXTROAMPHETAMINE SACCHARATE\DEXTROAMPHETAMINE SULFATE
  13. LYRICA [Concomitant]
     Active Substance: PREGABALIN
  14. XYREM [Suspect]
     Active Substance: SODIUM OXYBATE
     Dosage: 4.5 G, BID
     Route: 048
     Dates: start: 201206
  15. FETZIMA [Suspect]
     Active Substance: LEVOMILNACIPRAN HYDROCHLORIDE
     Indication: PRODUCT USED FOR UNKNOWN INDICATION
  16. FOLIC ACID. [Concomitant]
     Active Substance: FOLIC ACID
  17. WELLBUTRIN XL [Concomitant]
     Active Substance: BUPROPION HYDROCHLORIDE
  18. SAPHRIS [Concomitant]
     Active Substance: ASENAPINE MALEATE
  19. NUVIGIL [Concomitant]
     Active Substance: ARMODAFINIL
  20. CORTIZONE 10 [Concomitant]
     Active Substance: HYDROCORTISONE
  21. MOVANTIK [Concomitant]
     Active Substance: NALOXEGOL OXALATE
  22. MUPIROCIN. [Concomitant]
     Active Substance: MUPIROCIN
  23. VICKS NYQUIL [Concomitant]
     Active Substance: ACETAMINOPHEN\DEXTROMETHORPHAN HYDROBROMIDE\DOXYLAMINE SUCCINATE
  24. BUTRANS [Concomitant]
     Active Substance: BUPRENORPHINE
  25. CLARITIN [Concomitant]
     Active Substance: LORATADINE
  26. LAMICTAL [Concomitant]
     Active Substance: LAMOTRIGINE
  27. PENNSAID [Concomitant]
     Active Substance: DICLOFENAC SODIUM
  28. SAVELLA [Concomitant]
     Active Substance: MILNACIPRAN HYDROCHLORIDE
  29. CLARITIN-D 12 HOUR [Concomitant]
     Active Substance: LORATADINE\PSEUDOEPHEDRINE SULFATE
  30. TROKENDI XR [Concomitant]
     Active Substance: TOPIRAMATE
  31. BOTOX COSMETIC [Concomitant]
     Active Substance: ONABOTULINUMTOXINA
  32. VERAMYST [Concomitant]
     Active Substance: FLUTICASONE FUROATE
  33. VITAMIN B1 [Concomitant]
     Active Substance: THIAMINE HYDROCHLORIDE
  34. PANTOPRAZOLE SODIUM DR [Concomitant]
     Active Substance: PANTOPRAZOLE SODIUM
  35. MEDROL [Concomitant]
     Active Substance: METHYLPREDNISOLONE
  36. ABILIFY [Concomitant]
     Active Substance: ARIPIPRAZOLE
  37. PROVIGIL [Concomitant]
     Active Substance: MODAFINIL
  38. VITAMIN D3 [Concomitant]
     Active Substance: CHOLECALCIFEROL
  39. VITAMINS [Concomitant]
     Active Substance: VITAMINS
  40. XYREM [Suspect]
     Active Substance: SODIUM OXYBATE
     Indication: NARCOLEPSY
     Dosage: 2.25 G, BID
     Route: 048
     Dates: start: 200709, end: 200710
  41. VIIBRYD [Concomitant]
     Active Substance: VILAZODONE HYDROCHLORIDE
  42. ALEVE [Concomitant]
     Active Substance: NAPROXEN SODIUM
  43. VITAMIN B COMPLEX [Concomitant]
     Active Substance: CYANOCOBALAMIN\DEXPANTHENOL\NIACINAMIDE\PYRIDOXINE HYDROCHLORIDE\RIBOFLAVIN 5^-PHOSPHATE SODIUM\THIAMINE HYDROCHLORIDE\VITAMIN B COMPLEX
  44. HORIZANT [Suspect]
     Active Substance: GABAPENTIN ENACARBIL
     Indication: PRODUCT USED FOR UNKNOWN INDICATION
  45. ADDERALL [Concomitant]
     Active Substance: AMPHETAMINE ASPARTATE\AMPHETAMINE SULFATE\DEXTROAMPHETAMINE SACCHARATE\DEXTROAMPHETAMINE SULFATE
  46. INDERAL LA [Concomitant]
     Active Substance: PROPRANOLOL HYDROCHLORIDE
  47. TRAMADOL ER [Concomitant]
     Active Substance: TRAMADOL HYDROCHLORIDE
  48. PROPRANOLOL ER [Concomitant]
  49. VITAMIN E [Concomitant]
     Active Substance: .ALPHA.-TOCOPHEROL

REACTIONS (8)
  - Nasopharyngitis [Unknown]
  - Feeling abnormal [Unknown]
  - Mood altered [Unknown]
  - Sinusitis [Unknown]
  - Unevaluable event [Unknown]
  - Pain [Not Recovered/Not Resolved]
  - Nausea [Unknown]
  - Anxiety [Unknown]

NARRATIVE: CASE EVENT DATE: 2016
